FAERS Safety Report 16498076 (Version 2)
Quarter: 2019Q3

REPORT INFORMATION
  Report Type: Spontaneous
  Country: IT (occurrence: IT)
  Receive Date: 20190628
  Receipt Date: 20190806
  Transmission Date: 20191004
  Serious: Yes (Hospitalization, Other)
  Sender: FDA-Public Use
  Company Number: PHHY2019IT147159

PATIENT

DRUGS (2)
  1. DABRAFENIB [Suspect]
     Active Substance: DABRAFENIB
     Indication: MALIGNANT MELANOMA
     Dosage: UNK
     Route: 065
     Dates: start: 2019, end: 201906
  2. TRAMETINIB [Suspect]
     Active Substance: TRAMETINIB
     Indication: MALIGNANT MELANOMA
     Dosage: UNK
     Route: 065
     Dates: start: 2019, end: 201906

REACTIONS (6)
  - Blindness unilateral [Not Recovered/Not Resolved]
  - Constipation [Unknown]
  - Cataract [Not Recovered/Not Resolved]
  - Orbital oedema [Recovered/Resolved]
  - Eye swelling [Unknown]
  - Pyrexia [Unknown]

NARRATIVE: CASE EVENT DATE: 20190328
